FAERS Safety Report 7206089-9 (Version None)
Quarter: 2011Q1

REPORT INFORMATION
  Report Type: 
  Country: None (occurrence: None)
  Receive Date: 20110103
  Receipt Date: 20101220
  Transmission Date: 20110831
  Serious: Yes (Hospitalization, Other)
  Sender: FDA-Public Use
  Company Number: US-ELI_LILLY_AND_COMPANY-US201012005238

PATIENT
  Age: 76 Year
  Sex: Female

DRUGS (8)
  1. ASPIRIN [Concomitant]
  2. METOPROLOL [Concomitant]
  3. VITAMIN D [Concomitant]
     Dosage: UNK, WEEKLY (1/W)
  4. CALCIUM [Concomitant]
  5. VITAMIN TAB [Concomitant]
  6. FORTEO [Suspect]
     Indication: OSTEOPOROSIS
     Dosage: 20 UG, DAILY (1/D)
     Dates: start: 20101216, end: 20101216
  7. LIPITOR [Concomitant]
  8. RESTASIS [Concomitant]

REACTIONS (3)
  - DIZZINESS [None]
  - LOSS OF CONSCIOUSNESS [None]
  - ADVERSE DRUG REACTION [None]
